FAERS Safety Report 6021607-4 (Version None)
Quarter: 2008Q4

REPORT INFORMATION
  Report Type: 
  Country: None (occurrence: None)
  Receive Date: 20081229
  Receipt Date: 20081219
  Transmission Date: 20090506
  Serious: Yes (Other)
  Sender: FDA-Public Use
  Company Number: US-JNJCH-2008057872

PATIENT
  Sex: Female

DRUGS (1)
  1. VISINE PURE TEARS [Suspect]
     Indication: DRY EYE
     Dosage: TEXT:TWICE A DAY EVERY 8 HRS
     Route: 047
     Dates: start: 20081214, end: 20081218

REACTIONS (4)
  - ADVERSE REACTION [None]
  - EYE INJURY [None]
  - VISION BLURRED [None]
  - VISUAL IMPAIRMENT [None]
